FAERS Safety Report 6201332-7 (Version None)
Quarter: 2009Q2

REPORT INFORMATION
  Report Type: 
  Country: None (occurrence: None)
  Receive Date: 20090515
  Receipt Date: 20090504
  Transmission Date: 20091009
  Serious: Yes (Hospitalization)
  Sender: FDA-Public Use
  Company Number: US-000273

PATIENT
  Sex: Male

DRUGS (2)
  1. SOMATROPIN [Suspect]
     Indication: DWARFISM
     Dosage: 48 IU QD SUBCUTANEOUS
     Route: 058
     Dates: start: 20090501, end: 20090504
  2. CONCERTA [Concomitant]

REACTIONS (5)
  - ANOREXIA [None]
  - DIZZINESS [None]
  - HYPOPHAGIA [None]
  - NAUSEA [None]
  - VOMITING [None]
